FAERS Safety Report 7278935-4 (Version None)
Quarter: 2011Q1

REPORT INFORMATION
  Report Type: 
  Country: None (occurrence: None)
  Receive Date: 20110207
  Receipt Date: 20110124
  Transmission Date: 20110831
  Serious: Yes (Hospitalization)
  Sender: FDA-Public Use
  Company Number: PHHY2011AU06486

PATIENT
  Sex: Male

DRUGS (1)
  1. CLOZARIL [Suspect]
     Dosage: 325 MG,
     Dates: start: 20060626

REACTIONS (2)
  - LOWER LIMB FRACTURE [None]
  - FEMORAL NECK FRACTURE [None]
